FAERS Safety Report 9397703 (Version 2)
Quarter: 2013Q3

REPORT INFORMATION
  Report Type: Spontaneous
  Country: US (occurrence: US)
  Receive Date: 20130712
  Receipt Date: 20130805
  Transmission Date: 20140515
  Serious: No
  Sender: FDA-Public Use
  Company Number: US-009507513-1307USA005842

PATIENT
  Age: 96 Year
  Sex: Female
  Weight: 79.82 kg

DRUGS (3)
  1. MIRALAX [Suspect]
     Indication: OBSTRUCTION
     Dosage: 17 G, QD
     Route: 048
     Dates: start: 20130616
  2. MIRALAX [Suspect]
     Indication: MEDICAL OBSERVATION
  3. MIRALAX [Suspect]
     Indication: PRODUCT USED FOR UNKNOWN INDICATION

REACTIONS (4)
  - Product label confusion [Unknown]
  - Off label use [Unknown]
  - Drug ineffective for unapproved indication [Unknown]
  - Incorrect drug administration duration [Unknown]
